FAERS Safety Report 10208026 (Version 1)
Quarter: 2014Q2

REPORT INFORMATION
  Report Type: Spontaneous
  Country: US (occurrence: None)
  Receive Date: 20140527
  Receipt Date: 20140527
  Transmission Date: 20141212
  Serious: No
  Sender: FDA-Public Use
  Company Number: None

PATIENT
  Age: 62 Year
  Sex: Female

DRUGS (2)
  1. PRAVASTATIN [Suspect]
     Dates: start: 201011, end: 20121114
  2. GLUCOSAMINE CHONDROITIN [Suspect]
     Dates: end: 20130319

REACTIONS (3)
  - Drug-induced liver injury [None]
  - Hepatic fibrosis [None]
  - Autoimmune hepatitis [None]
